FAERS Safety Report 4668582-2 (Version None)
Quarter: 2005Q2

REPORT INFORMATION
  Report Type: 
  Country: None (occurrence: None)
  Receive Date: 20050523
  Receipt Date: 20050516
  Transmission Date: 20051028
  Serious: Yes (Hospitalization)
  Sender: FDA-Public Use
  Company Number: US-BRISTOL-MYERS SQUIBB COMPANY-12969838

PATIENT
  Age: 47 Year
  Sex: Female

DRUGS (2)
  1. CETUXIMAB [Suspect]
     Indication: COLORECTAL CANCER METASTATIC
     Dosage: 1ST CETUXIMAB INFUSION ADMINISTERED ON 07-APR-2005.
     Route: 042
  2. IRINOTECAN [Suspect]
     Indication: COLORECTAL CANCER METASTATIC
     Dosage: 1ST IRINOTECAN INFUSION ADMINISTERED ON 07-APR-2005.
     Route: 042

REACTIONS (2)
  - MOUTH ULCERATION [None]
  - PHARYNGITIS [None]
